FAERS Safety Report 6237775-5 (Version None)
Quarter: 2009Q2

REPORT INFORMATION
  Report Type: 
  Country: None (occurrence: None)
  Receive Date: 20090618
  Receipt Date: 20090604
  Transmission Date: 20091009
  Serious: Yes (Hospitalization)
  Sender: FDA-Public Use
  Company Number: 2009AL003729

PATIENT
  Age: 52 Year
  Sex: Male

DRUGS (12)
  1. DIGOXIN [Suspect]
     Dosage: 0.25MG, DAILY, PO
     Route: 048
  2. NOVOLIN [Concomitant]
  3. LANTUS [Concomitant]
  4. LASIX [Concomitant]
  5. K-DUR [Concomitant]
  6. LISINOPRIL [Concomitant]
  7. LOPRESSOR [Concomitant]
  8. APRESOLINE [Concomitant]
  9. PLAVIX [Concomitant]
  10. PERCOCET [Concomitant]
  11. ATIVAN [Concomitant]
  12. PRILOSEC [Concomitant]

REACTIONS (7)
  - ANGER [None]
  - COUGH [None]
  - EMOTIONAL DISORDER [None]
  - FACIAL PARESIS [None]
  - HYPOPHAGIA [None]
  - PERIPHERAL ARTERIAL OCCLUSIVE DISEASE [None]
  - URINE OUTPUT DECREASED [None]
